FAERS Safety Report 5404450-6 (Version None)
Quarter: 2007Q3

REPORT INFORMATION
  Report Type: 
  Country: None (occurrence: None)
  Receive Date: 20070802
  Receipt Date: 20070724
  Transmission Date: 20080115
  Serious: Yes (Other)
  Sender: FDA-Public Use
  Company Number: US-PFIZER INC-2007062190

PATIENT
  Age: 84 Year
  Sex: Male
  Weight: 64.545 kg

DRUGS (8)
  1. SUTENT [Suspect]
  2. VALIUM [Concomitant]
     Route: 048
  3. NITROGLYCERIN [Concomitant]
     Route: 048
  4. ASPIRIN [Concomitant]
     Route: 048
  5. METOPROLOL SUCCINATE [Concomitant]
     Route: 048
  6. ZETIA [Concomitant]
     Route: 048
  7. LOVASTATIN [Concomitant]
     Route: 048
  8. LISINOPRIL [Concomitant]
     Route: 048

REACTIONS (1)
  - PANCYTOPENIA [None]
